FAERS Safety Report 19908193 (Version 2)
Quarter: 2021Q4

REPORT INFORMATION
  Report Type: Spontaneous
  Country: FR (occurrence: FR)
  Receive Date: 20211001
  Receipt Date: 20211221
  Transmission Date: 20220303
  Serious: Yes (Other)
  Sender: FDA-Public Use
  Company Number: FR-JAZZ-2021-FR-018401

PATIENT

DRUGS (3)
  1. XYREM [Suspect]
     Active Substance: SODIUM OXYBATE
     Indication: Drug dependence
     Dosage: 1.8 MILLILITER, ONCE EVERY 2 TO 4 HOURS
     Route: 048
  2. CATHINONE [Suspect]
     Active Substance: CATHINONE
     Indication: Drug dependence
     Dosage: 0.3 MILLIGRAM, PER TAKE
     Route: 042
  3. ODEFSEY [Concomitant]
     Active Substance: EMTRICITABINE\RILPIVIRINE HYDROCHLORIDE\TENOFOVIR ALAFENAMIDE FUMARATE

REACTIONS (5)
  - Drug dependence [Recovering/Resolving]
  - Behavioural addiction [Recovering/Resolving]
  - Disturbance in attention [Unknown]
  - Insomnia [Recovering/Resolving]
  - Off label use [Unknown]
